FAERS Safety Report 7235805-5 (Version None)
Quarter: 2011Q1

REPORT INFORMATION
  Report Type: 
  Country: None (occurrence: None)
  Receive Date: 20110120
  Receipt Date: 20110112
  Transmission Date: 20110831
  Serious: Yes (Other)
  Sender: FDA-Public Use
  Company Number: US-ROCHE-477539

PATIENT
  Sex: Female
  Weight: 51.4 kg

DRUGS (8)
  1. PROPRANOLOL [Concomitant]
  2. PAXIL [Concomitant]
  3. BONIVA [Suspect]
     Indication: OSTEOPOROSIS
     Dosage: ROUTE: BY MOUTH.
     Route: 048
     Dates: start: 20061001
  4. ACTIGALL [Concomitant]
  5. FUROSEMIDE [Concomitant]
     Dosage: EVERY MONDAY AND FRIDAY.
  6. SPIRONOLACTONE [Concomitant]
  7. URSO FORTE [Concomitant]
  8. LIPITOR [Concomitant]

REACTIONS (2)
  - HYPERSENSITIVITY [None]
  - FOOT FRACTURE [None]
